FAERS Safety Report 6088575-0 (Version None)
Quarter: 2009Q1

REPORT INFORMATION
  Report Type: 
  Country: None (occurrence: None)
  Receive Date: 20090224
  Receipt Date: 20090218
  Transmission Date: 20090719
  Serious: Yes (Hospitalization)
  Sender: FDA-Public Use
  Company Number: US-BIOGENIDEC-2009BI001112

PATIENT
  Age: 65 Year
  Sex: Female
  Weight: 57 kg

DRUGS (2)
  1. AVONEX [Suspect]
     Indication: MULTIPLE SCLEROSIS
     Route: 030
     Dates: start: 19960515
  2. AVONEX [Suspect]
     Route: 030

REACTIONS (5)
  - FALL [None]
  - LYMPHANGIOLEIOMYOMATOSIS [None]
  - MUSCLE SPASTICITY [None]
  - PNEUMONIA [None]
  - SPINAL FRACTURE [None]
